FAERS Safety Report 15655955 (Version 1)
Quarter: 2018Q4

REPORT INFORMATION
  Report Type: Spontaneous
  Country: US (occurrence: US)
  Receive Date: 20181115
  Receipt Date: 20181115
  Transmission Date: 20190205
  Serious: Yes (Other)
  Sender: FDA-Public Use
  Company Number: None

PATIENT
  Age: 49 Year
  Sex: Female
  Weight: 85.05 kg

DRUGS (2)
  1. NITROFURANTION MONOHYD MACRO [Suspect]
     Active Substance: NITROFURANTOIN\NITROFURANTOIN MONOHYDRATE
     Indication: MYALGIA
     Route: 048
     Dates: start: 20181114, end: 20181114
  2. NITROFURANTION MONOHYD MACRO [Suspect]
     Active Substance: NITROFURANTOIN\NITROFURANTOIN MONOHYDRATE
     Indication: MUSCLE SPASMS
     Route: 048
     Dates: start: 20181114, end: 20181114

REACTIONS (4)
  - Musculoskeletal pain [None]
  - Myalgia [None]
  - Muscle spasms [None]
  - Neck pain [None]

NARRATIVE: CASE EVENT DATE: 20181114
